FAERS Safety Report 10828092 (Version 1)
Quarter: 2015Q1

REPORT INFORMATION
  Report Type: Report from Study
  Country: FR (occurrence: FR)
  Receive Date: 20150219
  Receipt Date: 20150219
  Transmission Date: 20150721
  Serious: Yes (Hospitalization)
  Sender: FDA-Public Use
  Company Number: FR-ROCHE-1539125

PATIENT
  Sex: Female

DRUGS (9)
  1. CORTANCYL [Concomitant]
     Active Substance: PREDNISONE
     Dosage: SUBSEQUENTLY RECEIVED ON 29/SEP/2006, 29/MAR/2007, 17/APR/2007,
     Route: 065
     Dates: start: 20060914
  2. CORTANCYL [Concomitant]
     Active Substance: PREDNISONE
     Dosage: SUBSEQUENTLY RECEIVED ON  07/JAN/2009 AND 28/JAN/2009, 30/SEP/2011
     Route: 065
     Dates: start: 20080104
  3. ARAVA [Concomitant]
     Active Substance: LEFLUNOMIDE
     Route: 065
  4. METHOTREXATE [Concomitant]
     Active Substance: METHOTREXATE
     Dosage: SUBSEQUENTLY RECEIVED ON 29/SEP/2006
     Route: 065
     Dates: start: 20060914
  5. METHOTREXATE [Concomitant]
     Active Substance: METHOTREXATE
     Dosage: SUBSEQUENTLY RECEIVED ON 17/APR/2007, 04/JAN/2008,  07/JAN/2009 AND 28/JAN/2009, 07/JUN/2010, 11/MAR
     Route: 065
     Dates: start: 20070329
  6. ORENCIA [Concomitant]
     Active Substance: ABATACEPT
     Route: 065
     Dates: start: 20140410
  7. RITUXIMAB [Suspect]
     Active Substance: RITUXIMAB
     Indication: RHEUMATOID ARTHRITIS
     Dosage: SUBSEQUENTLY RECEIVED ON 29/SEP/2006, 29/MAR/2007, 17/APR/2007, 18/DEC/2007,  04/JAN/2008, 07/JAN/20
     Route: 041
     Dates: start: 20060914
  8. METHYLPREDNISOLONE. [Concomitant]
     Active Substance: METHYLPREDNISOLONE
     Indication: PREMEDICATION
     Route: 065
     Dates: start: 20110930
  9. PARACETAMOL [Concomitant]
     Active Substance: ACETAMINOPHEN
     Indication: PREMEDICATION
     Route: 065
     Dates: start: 20110930

REACTIONS (13)
  - Infusion related reaction [Not Recovered/Not Resolved]
  - Mouth ulceration [Recovered/Resolved]
  - Pathological fracture [Unknown]
  - Vaginal ulceration [Recovered/Resolved]
  - Tobacco user [Recovered/Resolved]
  - Lung infection [Recovered/Resolved]
  - Dyspnoea [Not Recovered/Not Resolved]
  - Bronchitis [Recovered/Resolved]
  - Urinary tract infection [Recovered/Resolved]
  - Acute sinusitis [Recovered/Resolved]
  - Ill-defined disorder [Recovered/Resolved]
  - Bronchitis [Recovered/Resolved]
  - Stress fracture [Recovered/Resolved]

NARRATIVE: CASE EVENT DATE: 2009
